FAERS Safety Report 8072341-0 (Version None)
Quarter: 2012Q1

REPORT INFORMATION
  Report Type: 
  Country: None (occurrence: None)
  Receive Date: 20120124
  Receipt Date: 20120124
  Transmission Date: 20120608
  Serious: No
  Sender: FDA-Public Use
  Company Number: None

PATIENT
  Sex: Male
  Weight: 78.7 kg

DRUGS (2)
  1. TAXOL [Suspect]
     Dosage: 336 MG
     Dates: end: 20110822
  2. CARBOPLATIN [Suspect]
     Dosage: 650 MG
     Dates: end: 20110822

REACTIONS (1)
  - THROMBOCYTOPENIA [None]
